FAERS Safety Report 7373141-7 (Version None)
Quarter: 2011Q1

REPORT INFORMATION
  Report Type: 
  Country: None (occurrence: None)
  Receive Date: 20110324
  Receipt Date: 20110321
  Transmission Date: 20110831
  Serious: Yes (Death)
  Sender: FDA-Public Use
  Company Number: US-PFIZER INC-2011046033

PATIENT
  Sex: Male

DRUGS (5)
  1. OXYGEN [Concomitant]
     Indication: ORGANISING PNEUMONIA
     Dosage: UNK
     Route: 055
  2. REVATIO [Suspect]
     Indication: PULMONARY HYPERTENSION
     Dosage: 20 MG, 3X/DAY
     Route: 048
     Dates: start: 20100329
  3. PREDNISONE [Concomitant]
     Indication: ORGANISING PNEUMONIA
     Dosage: UNK
     Dates: start: 20080301
  4. GLIPIZIDE [Concomitant]
     Indication: DIABETES MELLITUS
     Dosage: UNK
     Dates: start: 20080301
  5. LASIX [Concomitant]
     Indication: OEDEMA
     Dosage: UNK
     Dates: start: 20080301

REACTIONS (1)
  - DEATH [None]
